FAERS Safety Report 8114730-1 (Version None)
Quarter: 2012Q1

REPORT INFORMATION
  Report Type: 
  Country: None (occurrence: None)
  Receive Date: 20120202
  Receipt Date: 20120202
  Transmission Date: 20120608
  Serious: Yes (Life-Threatening, Hospitalization, Other)
  Sender: FDA-Public Use
  Company Number: None

PATIENT
  Sex: Male

DRUGS (4)
  1. BYETTA [Suspect]
     Indication: OBESITY
     Dosage: BYETTA 5 - 10MCG BID SC
     Route: 058
  2. BYETTA [Suspect]
     Indication: TYPE 2 DIABETES MELLITUS
     Dosage: BYETTA 5 - 10MCG BID SC
     Route: 058
  3. VICTOZA [Suspect]
     Indication: OBESITY
     Dosage: VICTOZA 1.8MG QD SC
     Route: 058
     Dates: start: 20100602, end: 20110920
  4. VICTOZA [Suspect]
     Indication: TYPE 2 DIABETES MELLITUS
     Dosage: VICTOZA 1.8MG QD SC
     Route: 058
     Dates: start: 20100602, end: 20110920

REACTIONS (2)
  - NEUROENDOCRINE TUMOUR [None]
  - PANCREATITIS CHRONIC [None]
